FAERS Safety Report 10205013 (Version 2)
Quarter: 2014Q2

REPORT INFORMATION
  Report Type: Spontaneous
  Country: GB (occurrence: GB)
  Receive Date: 20140529
  Receipt Date: 20140626
  Transmission Date: 20141212
  Serious: Yes (Other)
  Sender: FDA-Public Use
  Company Number: GB-WATSON-2014-10806

PATIENT
  Age: 60 Year
  Sex: Female
  Weight: 57 kg

DRUGS (2)
  1. SERTRALINE (UNKNOWN) [Suspect]
     Indication: PRODUCT USED FOR UNKNOWN INDICATION
     Dosage: UNK, UNKNOWN
     Route: 065
  2. PROZAC [Suspect]
     Indication: DEPRESSION
     Dosage: UNK, UNKNOWN
     Route: 065
     Dates: start: 2012, end: 20140122

REACTIONS (3)
  - Suicidal ideation [Not Recovered/Not Resolved]
  - Myocardial infarction [Recovering/Resolving]
  - Drug withdrawal syndrome [Unknown]
